FAERS Safety Report 19012946 (Version 1)
Quarter: 2021Q1

REPORT INFORMATION
  Report Type: Spontaneous
  Country: GB (occurrence: GB)
  Receive Date: 20210315
  Receipt Date: 20210315
  Transmission Date: 20210420
  Serious: Yes (Hospitalization, Other)
  Sender: FDA-Public Use
  Company Number: GB-PURDUE-USA-2021-0233272

PATIENT
  Age: 11 Year
  Sex: Male

DRUGS (3)
  1. MELATONIN [Suspect]
     Active Substance: MELATONIN
     Indication: INSOMNIA
     Dosage: UNK
     Route: 065
  2. NON?PMN METHYLPHENIDATE HYDROCHLORIDE [Suspect]
     Active Substance: METHYLPHENIDATE HYDROCHLORIDE
     Indication: ATTENTION DEFICIT HYPERACTIVITY DISORDER
     Dosage: UNK
     Route: 065
  3. SALBUTAMOL [Suspect]
     Active Substance: ALBUTEROL
     Indication: ASTHMA EXERCISE INDUCED
     Dosage: UNK UNK, PRN
     Route: 055

REACTIONS (17)
  - Pallor [Recovered/Resolved]
  - Vision blurred [Recovered/Resolved]
  - Muscular weakness [Not Recovered/Not Resolved]
  - Chest pain [Recovered/Resolved]
  - Urinary incontinence [Unknown]
  - Muscular weakness [Recovered/Resolved]
  - Hyperhidrosis [Recovered/Resolved]
  - Hemiparesis [Recovered/Resolved]
  - Palpitations [Recovered/Resolved]
  - Blood potassium decreased [Recovered/Resolved]
  - Blood potassium decreased [Recovering/Resolving]
  - Loss of consciousness [Recovered/Resolved]
  - Gait disturbance [Recovered/Resolved]
  - Sinus tachycardia [Unknown]
  - Muscle twitching [Recovered/Resolved]
  - Feeling hot [Recovered/Resolved]
  - Sinus bradycardia [Recovered/Resolved]
